FAERS Safety Report 16768475 (Version 2)
Quarter: 2020Q1

REPORT INFORMATION
  Report Type: Spontaneous
  Country: GB (occurrence: GB)
  Receive Date: 20190903
  Receipt Date: 20200228
  Transmission Date: 20200409
  Serious: Yes (Other)
  Sender: FDA-Public Use
  Company Number: GB-MYLANLABS-2019M1081954

PATIENT
  Age: 9 Year
  Sex: Male
  Weight: 27 kg

DRUGS (2)
  1. MEDIKINET XL [Suspect]
     Active Substance: METHYLPHENIDATE HYDROCHLORIDE
     Indication: ATTENTION DEFICIT/HYPERACTIVITY DISORDER
     Dosage: 20 MILLIGRAM, QD, AT 6PM
     Route: 048
     Dates: start: 20170802, end: 20190312
  2. METHYLPHENIDATE. [Suspect]
     Active Substance: METHYLPHENIDATE
     Indication: ATTENTION DEFICIT/HYPERACTIVITY DISORDER
     Dosage: 20 MILLIGRAM, PRN (AT 6 PM)
     Route: 048
     Dates: start: 20170802, end: 20190312

REACTIONS (3)
  - Peripheral coldness [Recovered/Resolved]
  - Chest pain [Recovered/Resolved]
  - Hypoaesthesia [Recovered/Resolved]

NARRATIVE: CASE EVENT DATE: 20190219
